FAERS Safety Report 19495104 (Version 1)
Quarter: 2021Q3

REPORT INFORMATION
  Report Type: Spontaneous
  Country: DE (occurrence: DE)
  Receive Date: 20210705
  Receipt Date: 20210705
  Transmission Date: 20211014
  Serious: Yes (Life-Threatening, Hospitalization, Other)
  Sender: FDA-Public Use
  Company Number: DE-AUROBINDO-AUR-APL-2021-005733

PATIENT
  Age: 64 Year
  Sex: Female
  Weight: 61 kg

DRUGS (2)
  1. DOCETAXEL. [Suspect]
     Active Substance: DOCETAXEL
     Indication: LUNG ADENOCARCINOMA
     Dosage: 75 MILLIGRAM/SQ. METER, ONCE A DAY (BSA)
     Route: 065
     Dates: start: 20210120
  2. VARGATEF [Suspect]
     Active Substance: NINTEDANIB
     Indication: LUNG ADENOCARCINOMA
     Dosage: 200 MILLIGRAM, TWO TIMES A DAY
     Route: 065
     Dates: start: 20210121

REACTIONS (4)
  - Diarrhoea [Not Recovered/Not Resolved]
  - Neutrophil count decreased [Recovered/Resolved]
  - SARS-CoV-2 test positive [Not Recovered/Not Resolved]
  - Skin infection [Recovered/Resolved]

NARRATIVE: CASE EVENT DATE: 20210121
